FAERS Safety Report 24090356 (Version 1)
Quarter: 2024Q3

REPORT INFORMATION
  Report Type: Spontaneous
  Country: PR (occurrence: None)
  Receive Date: 20240712
  Receipt Date: 20240712
  Transmission Date: 20241017
  Serious: Yes (Life-Threatening, Hospitalization, Other)
  Sender: Public
  Company Number: None

PATIENT
  Age: 68 Year
  Sex: Female
  Weight: 72 kg

DRUGS (1)
  1. CALQUENCE [Suspect]
     Active Substance: ACALABRUTINIB
     Indication: Chronic lymphocytic leukaemia
     Dosage: 1 DF DOSAGE FORM TWICE A DAY ORAL
     Route: 048
     Dates: start: 20240611, end: 20240625

REACTIONS (3)
  - Contusion [None]
  - Dyspnoea [None]
  - Sepsis [None]

NARRATIVE: CASE EVENT DATE: 20240622
